FAERS Safety Report 5836131-9 (Version None)
Quarter: 2008Q3

REPORT INFORMATION
  Report Type: 
  Country: None (occurrence: None)
  Receive Date: 20080805
  Receipt Date: 20080722
  Transmission Date: 20090109
  Serious: Yes (Hospitalization)
  Sender: FDA-Public Use
  Company Number: 2008001747

PATIENT
  Age: 70 Year
  Sex: Male
  Weight: 126 kg

DRUGS (10)
  1. ERLOTINIB (ERLOTINIB) [Suspect]
     Indication: NON-SMALL CELL LUNG CANCER
     Dosage: 150 MG QD, ORAL
     Route: 048
     Dates: start: 20071205
  2. PEMETREXED       (PEMETREXED) (INJECTION FOR INFUSION) [Suspect]
     Indication: NON-SMALL CELL LUNG CANCER
     Dosage: 400 MG/M2, Q3W, INTRATHECAL
     Route: 037
     Dates: start: 20071205
  3. FOLIC ACID [Concomitant]
  4. VITAMIN B12 [Concomitant]
  5. DEXAMETHASONE TAB [Concomitant]
  6. FUROSEMIDE [Concomitant]
  7. METOPROLOL TARTRATE [Concomitant]
  8. SPIRIVA [Concomitant]
  9. VIANI (SERETIDE MITE) [Concomitant]
  10. SALBUTAMOL (SALBUTAMOL) [Concomitant]

REACTIONS (7)
  - BLOOD CREATININE INCREASED [None]
  - CANDIDIASIS [None]
  - DIARRHOEA [None]
  - GENERAL PHYSICAL HEALTH DETERIORATION [None]
  - NAUSEA [None]
  - NEUTROPHIL COUNT DECREASED [None]
  - SLEEP DISORDER [None]
